FAERS Safety Report 8602056-9 (Version None)
Quarter: 2012Q3

REPORT INFORMATION
  Report Type: 
  Country: None (occurrence: None)
  Receive Date: 20120817
  Receipt Date: 20120807
  Transmission Date: 20120928
  Serious: Yes (Other)
  Sender: FDA-Public Use
  Company Number: US-JNJFOC-20120805093

PATIENT
  Sex: Male
  Weight: 89.81 kg

DRUGS (4)
  1. XANAX [Concomitant]
     Indication: ANXIETY
     Route: 048
     Dates: start: 20110101
  2. LAMICTAL [Concomitant]
     Indication: CONVULSION
     Route: 048
     Dates: start: 20110101
  3. FENTANYL-100 [Suspect]
     Indication: INTERVERTEBRAL DISC DISORDER
     Route: 062
     Dates: start: 20120601, end: 20120725
  4. FENTANYL-100 [Suspect]
     Indication: INTERVERTEBRAL DISC DEGENERATION
     Route: 062
     Dates: start: 20120601, end: 20120725

REACTIONS (6)
  - ABDOMINAL PAIN [None]
  - NAUSEA [None]
  - ABNORMAL LOSS OF WEIGHT [None]
  - NIGHT SWEATS [None]
  - VOMITING [None]
  - EATING DISORDER [None]
